FAERS Safety Report 10261091 (Version 2)
Quarter: 2014Q2

REPORT INFORMATION
  Report Type: Spontaneous
  Country: US (occurrence: US)
  Receive Date: 20140626
  Receipt Date: 20140626
  Transmission Date: 20141212
  Serious: No
  Sender: FDA-Public Use
  Company Number: US-DRREDDYS-USA/USA/14/0039524

PATIENT
  Age: 75 Year
  Sex: Female
  Weight: 68.03 kg

DRUGS (5)
  1. ZIPRASIDONE [Suspect]
     Indication: SLEEP DISORDER
     Route: 048
     Dates: start: 20140401, end: 20140405
  2. AMLODIPINE BESYLATE [Concomitant]
     Indication: PRODUCT USED FOR UNKNOWN INDICATION
     Route: 065
  3. PREMARIN [Concomitant]
     Indication: PRODUCT USED FOR UNKNOWN INDICATION
     Route: 065
  4. DIOVAN HCT [Concomitant]
     Indication: PRODUCT USED FOR UNKNOWN INDICATION
     Dosage: 320/12.5 MG ONCE DAILY IN AM
     Route: 065
  5. ATENOLOL [Concomitant]
     Indication: PRODUCT USED FOR UNKNOWN INDICATION
     Route: 065

REACTIONS (3)
  - Fatigue [Recovering/Resolving]
  - Drug ineffective [Unknown]
  - Product quality issue [Unknown]
